FAERS Safety Report 8989888 (Version 2)
Quarter: 2013Q1

REPORT INFORMATION
  Report Type: Report from Study
  Country: RU (occurrence: RU)
  Receive Date: 20121228
  Receipt Date: 20130128
  Transmission Date: 20140127
  Serious: Yes (Death)
  Sender: FDA-Public Use
  Company Number: RU-ROCHE-1175019

PATIENT
  Age: 53 Year
  Sex: Male
  Weight: 85 kg

DRUGS (5)
  1. AVASTIN [Suspect]
     Indication: RECTAL CANCER
     Route: 065
     Dates: start: 20120313, end: 20120724
  2. 5-FU [Concomitant]
     Indication: RECTAL CANCER
     Dosage: 750/2000
     Route: 042
     Dates: start: 20120313, end: 20120724
  3. LEUCOVORIN [Concomitant]
     Indication: RECTAL CANCER
     Route: 042
     Dates: start: 20120313, end: 20120724
  4. OXALIPLATIN [Concomitant]
     Indication: RECTAL CANCER
     Route: 065
     Dates: start: 20120313, end: 20120622
  5. IRINOTECAN [Concomitant]
     Indication: RECTAL CANCER
     Route: 065
     Dates: start: 20120313, end: 20120724

REACTIONS (1)
  - Disease progression [Fatal]
